FAERS Safety Report 23513303 (Version 1)
Quarter: 2024Q1

REPORT INFORMATION
  Report Type: Spontaneous
  Country: US (occurrence: US)
  Receive Date: 20240212
  Receipt Date: 20240212
  Transmission Date: 20240409
  Serious: No
  Sender: FDA-Public Use
  Company Number: US-RECORDATI RARE DISEASE INC.-2023001354

PATIENT
  Age: 44 Year
  Sex: Female

DRUGS (5)
  1. PANHEMATIN [Suspect]
     Active Substance: HEMIN
     Indication: Porphyria acute
     Dosage: UNK
     Route: 065
  2. PANHEMATIN [Suspect]
     Active Substance: HEMIN
     Dosage: UNK
     Route: 065
  3. PANHEMATIN [Suspect]
     Active Substance: HEMIN
     Dosage: UNK
     Route: 065
  4. PANHEMATIN [Suspect]
     Active Substance: HEMIN
     Dosage: UNK
     Route: 065
  5. PANHEMATIN [Suspect]
     Active Substance: HEMIN
     Dosage: 4 MILLIGRAM/KILOGRAM
     Route: 042
     Dates: start: 20230217, end: 20230217

REACTIONS (3)
  - Swelling [Unknown]
  - Pain [Unknown]
  - Skin discolouration [Unknown]

NARRATIVE: CASE EVENT DATE: 20230217
